FAERS Safety Report 10991429 (Version 1)
Quarter: 2015Q2

REPORT INFORMATION
  Report Type: Spontaneous
  Country: GB (occurrence: GB)
  Receive Date: 20150406
  Receipt Date: 20150406
  Transmission Date: 20150821
  Serious: Yes (Disabling, Other)
  Sender: FDA-Public Use
  Company Number: GB-PFIZER INC-2015113559

PATIENT
  Age: 76 Year
  Sex: Male
  Weight: 82 kg

DRUGS (2)
  1. ATORVASTATIN [Suspect]
     Active Substance: ATORVASTATIN
     Indication: TRANSIENT ISCHAEMIC ATTACK
     Dosage: 10 MG, UNK
     Route: 048
     Dates: start: 20150309, end: 20150319
  2. NAPROXEN. [Concomitant]
     Active Substance: NAPROXEN
     Indication: GOUT
     Dosage: UNK

REACTIONS (5)
  - Pain in extremity [Recovering/Resolving]
  - Somnolence [Unknown]
  - Disturbance in attention [Unknown]
  - Influenza like illness [Unknown]
  - Arthralgia [Recovering/Resolving]

NARRATIVE: CASE EVENT DATE: 20150310
